FAERS Safety Report 7525400-2 (Version None)
Quarter: 2011Q2

REPORT INFORMATION
  Report Type: 
  Country: None (occurrence: None)
  Receive Date: 20110601
  Receipt Date: 20110601
  Transmission Date: 20111010
  Serious: Yes (Other)
  Sender: FDA-Public Use
  Company Number: None

PATIENT
  Age: 65 Year
  Sex: Male
  Weight: 81.6475 kg

DRUGS (2)
  1. MIRTAZAPINE [Suspect]
     Indication: DEPRESSION
     Dosage: 7.5 MG 1 TIME PO
     Route: 048
     Dates: start: 20110529, end: 20110530
  2. MIRTAZAPINE [Suspect]
     Indication: SLEEP DISORDER
     Dosage: 7.5 MG 1 TIME PO
     Route: 048
     Dates: start: 20110529, end: 20110530

REACTIONS (9)
  - PARALYSIS [None]
  - PSYCHOTIC DISORDER [None]
  - NIGHTMARE [None]
  - PARANOIA [None]
  - ANXIETY [None]
  - SOMNOLENCE [None]
  - PRODUCT SUBSTITUTION ISSUE [None]
  - DEPRESSION [None]
  - THINKING ABNORMAL [None]
